FAERS Safety Report 9066738 (Version 2)
Quarter: 2013Q1

REPORT INFORMATION
  Report Type: Spontaneous
  Country: US (occurrence: US)
  Receive Date: 20130214
  Receipt Date: 20130305
  Transmission Date: 20140127
  Serious: Yes (Hospitalization)
  Sender: FDA-Public Use
  Company Number: US-GLAXOSMITHKLINE-A0996434A

PATIENT
  Age: 52 Year
  Sex: Female
  Weight: 105.9 kg

DRUGS (1)
  1. AVANDIA [Suspect]
     Indication: DIABETES MELLITUS
     Dosage: 4MG PER DAY
     Route: 048
     Dates: start: 20001031, end: 20010226

REACTIONS (3)
  - Cardiac failure congestive [Not Recovered/Not Resolved]
  - Pain [Unknown]
  - Pollakiuria [Unknown]
